FAERS Safety Report 7011691 (Version 2)
Quarter: 2013Q1

REPORT INFORMATION
  Report Type: Spontaneous
  Country: DE (occurrence: None)
  Receive Date: 20090522
  Receipt Date: 20130115
  Transmission Date: 20140127
  Serious: Yes (Life-Threatening, Hospitalization)
  Sender: FDA-Public Use
  Company Number: 2009AP001936

PATIENT
  Age: 37 Year
  Sex: Female

DRUGS (7)
  1. CARBAMAZEPINE [Suspect]
     Indication: NECK PAIN
     Route: 048
     Dates: start: 20090218, end: 20090303
  2. ADVIL [Suspect]
     Indication: VIRAL INFECTION
     Route: 048
     Dates: start: 20090228, end: 20090303
  3. ACETYLSALICYLIC ACID (ACETYLSALICYLIC ACID) [Concomitant]
  4. ACETAMINOPHEN [Concomitant]
  5. MORCLOFONE (MORCLOFONE) [Concomitant]
  6. NEOMYCIN SULFATE [Concomitant]
  7. POLYMYXIN B SULFATE (POLYMYXIN B SULFATE) [Concomitant]

REACTIONS (11)
  - Respiratory failure [None]
  - Bronchopneumonia [None]
  - Rhabdomyolysis [None]
  - Hypophosphataemia [None]
  - Respiratory acidosis [None]
  - Drug eruption [None]
  - Escherichia bacteraemia [None]
  - Pseudomonal bacteraemia [None]
  - Staphylococcal bacteraemia [None]
  - Influenza [None]
  - Toxic epidermal necrolysis [None]
